FAERS Safety Report 13632749 (Version 3)
Quarter: 2017Q3

REPORT INFORMATION
  Report Type: Spontaneous
  Country: BE (occurrence: BE)
  Receive Date: 20170609
  Receipt Date: 20170803
  Transmission Date: 20171127
  Serious: Yes (Hospitalization, Other)
  Sender: FDA-Public Use
  Company Number: BE-AUROBINDO-AUR-APL-2017-35082

PATIENT
  Age: 84 Year
  Sex: Female

DRUGS (2)
  1. PHENPROCOUMON [Concomitant]
     Active Substance: PHENPROCOUMON
     Indication: ATRIAL FIBRILLATION
     Route: 065
  2. AMIODARONE 200MG [Suspect]
     Active Substance: AMIODARONE
     Indication: ATRIAL FIBRILLATION
     Dosage: 200 MG, ONCE A DAY
     Route: 065

REACTIONS (7)
  - Pulmonary toxicity [Unknown]
  - Tricuspid valve incompetence [Unknown]
  - Interstitial lung disease [Recovering/Resolving]
  - Malaise [Unknown]
  - Cardiomegaly [Unknown]
  - Pulmonary hypertension [Unknown]
  - Bronchiectasis [Recovering/Resolving]
